FAERS Safety Report 25325531 (Version 1)
Quarter: 2025Q2

REPORT INFORMATION
  Report Type: Spontaneous
  Country: US (occurrence: US)
  Receive Date: 20250516
  Receipt Date: 20250516
  Transmission Date: 20250717
  Serious: Yes (Other)
  Sender: JUBILANT
  Company Number: US-JUBILANT CADISTA PHARMACEUTICALS-2025JUB00063

PATIENT
  Sex: Male

DRUGS (2)
  1. PREDNISONE [Suspect]
     Active Substance: PREDNISONE
     Indication: Myasthenia gravis
     Dosage: UNK UNK, 1X/DAY
     Dates: end: 20250214
  2. VYVGART [EFGARTIGIMOD ALFA] [Concomitant]

REACTIONS (6)
  - Steroid withdrawal syndrome [Unknown]
  - Fatigue [Unknown]
  - Asthenia [Unknown]
  - Muscle injury [Unknown]
  - Osteoarthritis [Unknown]
  - Dyskinesia [Unknown]

NARRATIVE: CASE EVENT DATE: 20240101
